FAERS Safety Report 16314672 (Version 1)
Quarter: 2019Q2

REPORT INFORMATION
  Report Type: Spontaneous
  Country: IN (occurrence: IN)
  Receive Date: 20190515
  Receipt Date: 20190515
  Transmission Date: 20190711
  Serious: Yes (Other)
  Sender: FDA-Public Use
  Company Number: IN-ELI_LILLY_AND_COMPANY-IN201905001094

PATIENT
  Age: 60 Year
  Sex: Male

DRUGS (12)
  1. DEXAMETHASONE. [Concomitant]
     Active Substance: DEXAMETHASONE
     Route: 042
     Dates: start: 2017
  2. DEXTROSE 5% [Concomitant]
     Active Substance: DEXTROSE
     Dosage: ADMINISTERED OVER 1.5 H
     Route: 042
     Dates: start: 2017, end: 2017
  3. GEMCITABINE HYDROCHLORIDE. [Suspect]
     Active Substance: GEMCITABINE HYDROCHLORIDE
     Dosage: 1400 MG, CYCLICAL
     Route: 042
     Dates: start: 2017, end: 2017
  4. SODIUM CHLORIDE. [Concomitant]
     Active Substance: SODIUM CHLORIDE
     Route: 042
     Dates: start: 201705, end: 2017
  5. DEXTROSE 5% [Concomitant]
     Active Substance: DEXTROSE
     Dosage: ADMINISTERED OVER 1.5 H
     Route: 042
     Dates: start: 201705
  6. GEMCITABINE HYDROCHLORIDE. [Suspect]
     Active Substance: GEMCITABINE HYDROCHLORIDE
     Indication: SQUAMOUS CELL CARCINOMA
     Dosage: 1400 MG, CYCLICAL
     Route: 042
     Dates: start: 201705
  7. RANITIDINE. [Concomitant]
     Active Substance: RANITIDINE
     Route: 042
     Dates: start: 2017
  8. ONDANSETRON [Concomitant]
     Active Substance: ONDANSETRON
     Route: 042
     Dates: start: 2017
  9. PACLITAXEL. [Suspect]
     Active Substance: PACLITAXEL
     Indication: SQUAMOUS CELL CARCINOMA
     Dosage: 120 MG, CYCLICAL
     Route: 042
     Dates: start: 2017, end: 2017
  10. PACLITAXEL. [Suspect]
     Active Substance: PACLITAXEL
     Dosage: 120 MG, CYCLICAL
     Route: 042
     Dates: start: 201705
  11. SODIUM CHLORIDE. [Concomitant]
     Active Substance: SODIUM CHLORIDE
     Route: 042
     Dates: start: 2017, end: 2017
  12. CHLORPHENAMINE MALEATE [Concomitant]
     Active Substance: CHLORPHENIRAMINE MALEATE
     Route: 042
     Dates: start: 2017

REACTIONS (5)
  - Anaemia [Recovered/Resolved]
  - Nausea [Unknown]
  - Neuropathy peripheral [Recovered/Resolved]
  - Blood glucose increased [Unknown]
  - Haemoglobin decreased [Recovered/Resolved]

NARRATIVE: CASE EVENT DATE: 2017
